FAERS Safety Report 13006570 (Version 1)
Quarter: 2016Q4

REPORT INFORMATION
  Report Type: Spontaneous
  Country: US (occurrence: US)
  Receive Date: 20161207
  Receipt Date: 20161207
  Transmission Date: 20170207
  Serious: Yes (Death, Hospitalization)
  Sender: FDA-Public Use
  Company Number: US-BAYER-2016-227167

PATIENT
  Age: 51 Year
  Sex: Male
  Weight: 108.86 kg

DRUGS (1)
  1. STIVARGA [Suspect]
     Active Substance: REGORAFENIB
     Dosage: 160MG DAILY
     Dates: start: 20161008, end: 20161028

REACTIONS (11)
  - Death [Fatal]
  - Alanine aminotransferase increased [Fatal]
  - Blood bilirubin increased [Fatal]
  - Aspartate aminotransferase increased [Fatal]
  - Hyperbilirubinaemia [Fatal]
  - Hepatotoxicity [Fatal]
  - Ammonia increased [Fatal]
  - Blood pressure increased [Fatal]
  - White blood cell count increased [Fatal]
  - Haematocrit increased [Fatal]
  - Blood alkaline phosphatase increased [Fatal]

NARRATIVE: CASE EVENT DATE: 20161008
